FAERS Safety Report 9503177 (Version 1)
Quarter: 2013Q1

REPORT INFORMATION
  Report Type: Spontaneous
  Country: US (occurrence: None)
  Receive Date: 20130107
  Receipt Date: 20130107
  Transmission Date: 20140127
  Serious: No
  Sender: FDA-Public Use
  Company Number: PHEH2012US017693

PATIENT
  Age: 53 Year
  Sex: Female

DRUGS (5)
  1. GILENYA [Suspect]
     Indication: MULTIPLE SCLEROSIS
     Route: 048
     Dates: start: 201206
  2. CALTRATE (CALCIUM CARBONATE) [Concomitant]
  3. CENTRUM (MINERALS NOS, VITAMINS NOS) [Concomitant]
  4. ASPIRIN (ACETYLSALICYLIC ACID) [Concomitant]
  5. AMLODIPINE (AMLODIPINE) [Concomitant]

REACTIONS (4)
  - Balance disorder [None]
  - Visual impairment [None]
  - Nausea [None]
  - Dizziness [None]
